FAERS Safety Report 8229616-1 (Version None)
Quarter: 2012Q1

REPORT INFORMATION
  Report Type: 
  Country: None (occurrence: None)
  Receive Date: 20120322
  Receipt Date: 20120312
  Transmission Date: 20120608
  Serious: Yes (Hospitalization)
  Sender: FDA-Public Use
  Company Number: PHHY2012SE015553

PATIENT
  Sex: Male

DRUGS (4)
  1. OMEPRAZOLE [Concomitant]
     Dosage: UNK UKN, UNK
  2. VIAGRA [Concomitant]
     Dosage: UNK UKN, UNK
  3. ENALAPRIL [Concomitant]
     Dosage: UNK UKN, UNK
  4. TASIGNA [Suspect]
     Indication: CHRONIC MYELOID LEUKAEMIA
     Dosage: 300 MG, BID
     Route: 048
     Dates: start: 20120210, end: 20120215

REACTIONS (3)
  - PANCREATITIS [None]
  - PYREXIA [None]
  - ABDOMINAL PAIN UPPER [None]
